FAERS Safety Report 16778160 (Version 1)
Quarter: 2019Q3

REPORT INFORMATION
  Report Type: Spontaneous
  Country: US (occurrence: US)
  Receive Date: 20190905
  Receipt Date: 20190905
  Transmission Date: 20191005
  Serious: Yes (Other)
  Sender: FDA-Public Use
  Company Number: US-NOVOPROD-682149

PATIENT
  Age: 79 Year
  Sex: Male

DRUGS (1)
  1. TRESIBA [Suspect]
     Active Substance: INSULIN DEGLUDEC
     Indication: TYPE 2 DIABETES MELLITUS
     Dosage: 10 IU, QD (10 UNITS DAILY)
     Route: 058
     Dates: start: 2016

REACTIONS (2)
  - Skin disorder [Unknown]
  - Skin operation [Unknown]

NARRATIVE: CASE EVENT DATE: 201812
